FAERS Safety Report 21007393 (Version 1)
Quarter: 2022Q2

REPORT INFORMATION
  Report Type: Spontaneous
  Country: US (occurrence: US)
  Receive Date: 20220626
  Receipt Date: 20220626
  Transmission Date: 20220721
  Serious: No
  Sender: FDA-Public Use
  Company Number: US-GLENMARK PHARMACEUTICALS-2022GMK072003

PATIENT

DRUGS (1)
  1. CLOBETASOL PROPIONATE [Suspect]
     Active Substance: CLOBETASOL PROPIONATE
     Indication: Diffuse alopecia
     Dosage: DAILY FOR 2 WEEKS THEN TAKE A BREAK FOR 1 WEEK AND REPEAT
     Route: 061

REACTIONS (1)
  - Product use in unapproved indication [Unknown]
